FAERS Safety Report 9875866 (Version 1)
Quarter: 2014Q1

REPORT INFORMATION
  Report Type: Spontaneous
  Country: JP (occurrence: None)
  Receive Date: 20140204
  Receipt Date: 20140204
  Transmission Date: 20141002
  Serious: Yes (Other)
  Sender: FDA-Public Use
  Company Number: JP-014545

PATIENT
  Age: 60 Year
  Sex: Male

DRUGS (1)
  1. DEGARELIX (GONAX) [Suspect]
     Indication: PROSTATE CANCER

REACTIONS (4)
  - Cardiac failure [None]
  - Pleural effusion [None]
  - Ascites [None]
  - Blood albumin decreased [None]
